FAERS Safety Report 6790445-7 (Version None)
Quarter: 2010Q2

REPORT INFORMATION
  Report Type: 
  Country: None (occurrence: None)
  Receive Date: 20100624
  Receipt Date: 20100615
  Transmission Date: 20101027
  Serious: Yes (Other)
  Sender: FDA-Public Use
  Company Number: US-PURDUE-USA-2010-0043699

PATIENT
  Age: 59 Year
  Sex: Female
  Weight: 58.957 kg

DRUGS (32)
  1. OXYCONTIN [Suspect]
     Indication: ARTHRITIS
     Dosage: 80 MG, UNK
     Dates: start: 20080901
  2. CHANTIX [Interacting]
     Indication: SMOKING CESSATION THERAPY
     Dosage: 0.5 MG, SEE TEXT
     Route: 048
     Dates: start: 20080919
  3. PREDNISONE [Concomitant]
     Indication: PNEUMONIA
     Dosage: 10 MG, DAILY
  4. QUININE [Concomitant]
     Dosage: UNK
  5. LEVOTHYROXINE SODIUM [Concomitant]
     Indication: THYROID DISORDER
     Dosage: UNK
  6. GEMFIBROZIL [Concomitant]
     Indication: BLOOD CHOLESTEROL INCREASED
     Dosage: 600 MG, DAILY
  7. NEURONTIN [Concomitant]
     Indication: NEURALGIA
     Dosage: UNK
  8. PLAQUENIL                          /00072601/ [Concomitant]
     Dosage: UNK
  9. VESICARE [Concomitant]
     Dosage: UNK
  10. FOLIC ACID [Concomitant]
     Dosage: UNK
  11. CALCIUM CARBONATE [Concomitant]
     Dosage: UNK
  12. VITAMIN A [Concomitant]
     Dosage: UNK
  13. ADVAIR DISKUS 100/50 [Concomitant]
     Indication: ASTHMA
     Dosage: UNK
  14. LORAZEPAM [Concomitant]
     Indication: DEPRESSION
     Dosage: UNK
  15. COMBIVENT [Concomitant]
     Indication: ASTHMA
     Dosage: UNK
  16. LISINOPRIL [Concomitant]
     Indication: HYPERTENSION
     Dosage: UNK
  17. NYSTATIN [Concomitant]
     Indication: CANDIDIASIS
  18. CELEBREX [Concomitant]
     Dosage: 200 MG, UNK
  19. PHOSPHORUS [Concomitant]
  20. LASIX [Concomitant]
     Dosage: 20 MG, DAILY
  21. ASPIRIN [Concomitant]
     Dosage: 81 MG, DAILY
  22. IRON [Concomitant]
  23. TRAZODONE HYDROCHLORIDE [Concomitant]
     Indication: INSOMNIA
  24. KLOR-CON [Concomitant]
  25. OXYIR CAPSULES 5 MG [Concomitant]
  26. ENABLEX                            /01760401/ [Concomitant]
     Indication: BLADDER DISORDER
     Dosage: 7.5 MG, DAILY
  27. LIDODERM [Concomitant]
  28. LOPERAMIDE [Concomitant]
     Indication: NAUSEA
  29. LOPERAMIDE [Concomitant]
     Indication: DIARRHOEA
  30. DOXYCYCLINE [Concomitant]
     Indication: LUNG INFECTION
  31. DARIFENACIN HYDROBROMIDE [Concomitant]
     Dosage: UNK
  32. LEVOTHYROXINE [Concomitant]
     Dosage: UNK

REACTIONS (44)
  - ABASIA [None]
  - ABNORMAL DREAMS [None]
  - ANGER [None]
  - ANXIETY [None]
  - ARTHRALGIA [None]
  - BACK PAIN [None]
  - CONFUSIONAL STATE [None]
  - CONSTIPATION [None]
  - CONTUSION [None]
  - DEPRESSED MOOD [None]
  - DEPRESSION [None]
  - DIARRHOEA [None]
  - DISTURBANCE IN ATTENTION [None]
  - DRUG DOSE OMISSION [None]
  - DRUG EFFECT DECREASED [None]
  - DRUG INTERACTION [None]
  - EMOTIONAL DISTRESS [None]
  - EXOSTOSIS [None]
  - FALL [None]
  - FATIGUE [None]
  - FEAR [None]
  - FEELING GUILTY [None]
  - FLATULENCE [None]
  - HEADACHE [None]
  - HYPERPHAGIA [None]
  - INCREASED APPETITE [None]
  - INSOMNIA [None]
  - IRRITABILITY [None]
  - LUNG INFECTION [None]
  - MALAISE [None]
  - MEMORY IMPAIRMENT [None]
  - MIDDLE INSOMNIA [None]
  - MUSCLE SPASMS [None]
  - NAUSEA [None]
  - NEGATIVE THOUGHTS [None]
  - OEDEMA PERIPHERAL [None]
  - PAIN [None]
  - PAIN IN EXTREMITY [None]
  - PERIPHERAL COLDNESS [None]
  - SOMNOLENCE [None]
  - SPUTUM DISCOLOURED [None]
  - STRESS [None]
  - TENSION [None]
  - WEIGHT INCREASED [None]
